FAERS Safety Report 9443675 (Version 1)
Quarter: 2013Q3

REPORT INFORMATION
  Report Type: Spontaneous
  Country: JP (occurrence: JP)
  Receive Date: 20130806
  Receipt Date: 20130806
  Transmission Date: 20140515
  Serious: Yes (Other)
  Sender: FDA-Public Use
  Company Number: PHHY2013JP079739

PATIENT
  Age: 20 Year
  Sex: Female

DRUGS (4)
  1. IRINOTECAN [Suspect]
     Indication: SARCOMA UTERUS
  2. VINCRISTINE SULFATE [Suspect]
     Indication: SARCOMA UTERUS
  3. ACTINOMYCIN D [Suspect]
     Indication: SARCOMA UTERUS
  4. CYCLOPHOSPHAMIDE [Suspect]
     Indication: SARCOMA UTERUS

REACTIONS (2)
  - White blood cell count decreased [Unknown]
  - Cervix carcinoma recurrent [Recovered/Resolved]
